FAERS Safety Report 20799183 (Version 3)
Quarter: 2024Q1

REPORT INFORMATION
  Report Type: Report from Study
  Country: US (occurrence: US)
  Receive Date: 20220508
  Receipt Date: 20240326
  Transmission Date: 20240410
  Serious: Yes (Hospitalization, Other)
  Sender: FDA-Public Use
  Company Number: US-NOVARTISPH-NVSC2022US075568

PATIENT
  Age: 75 Year
  Sex: Female
  Weight: 41.5 kg

DRUGS (35)
  1. LAMPRENE [Suspect]
     Active Substance: CLOFAZIMINE
     Indication: Mycobacterium avium complex infection
     Dosage: 50 MG, QD (DATE DOSE LAST TAKEN PRIOR TO AE: 22 MAR 2022)
     Route: 048
     Dates: start: 20210225
  2. LAMPRENE [Suspect]
     Active Substance: CLOFAZIMINE
     Indication: Mycobacterium abscessus infection
     Dosage: 50 MG, QD
     Route: 048
     Dates: start: 20210225, end: 20210512
  3. LAMPRENE [Suspect]
     Active Substance: CLOFAZIMINE
     Dosage: 50 MG, QD
     Route: 048
     Dates: start: 20210225, end: 202107
  4. LAMPRENE [Suspect]
     Active Substance: CLOFAZIMINE
     Dosage: 50 MG, QD
     Route: 048
     Dates: start: 20210225, end: 20210909
  5. LAMPRENE [Suspect]
     Active Substance: CLOFAZIMINE
     Dosage: 50 MG, QD
     Route: 048
     Dates: start: 20210225, end: 20211106
  6. LAMPRENE [Suspect]
     Active Substance: CLOFAZIMINE
     Dosage: 100 MG, QD
     Route: 048
     Dates: start: 20210616, end: 20220310
  7. LAMPRENE [Suspect]
     Active Substance: CLOFAZIMINE
     Dosage: 100 MG, QD
     Route: 048
     Dates: start: 20220331
  8. LAMPRENE [Suspect]
     Active Substance: CLOFAZIMINE
     Dosage: 100 MG, QD
     Route: 048
     Dates: start: 20230607
  9. LINEZOLID [Concomitant]
     Active Substance: LINEZOLID
     Indication: Mycobacterium avium complex infection
     Dosage: 600 MG, UNKNOWN
     Route: 065
     Dates: start: 20211117
  10. LINEZOLID [Concomitant]
     Active Substance: LINEZOLID
     Dosage: 600 MG, BID (DATE DOSE LAST TAKEN PRIOR TO AE: 22 MAR 2022)
     Route: 065
     Dates: start: 20220310
  11. AZITHROMYCIN [Concomitant]
     Active Substance: AZITHROMYCIN
     Indication: Mycobacterium avium complex infection
     Dosage: 500 MG, QD
     Route: 065
     Dates: start: 20190123
  12. AZITHROMYCIN [Concomitant]
     Active Substance: AZITHROMYCIN
     Dosage: 250 MG, QD (DATE DOSE LAST TAKEN PRIOR TO AE: 22 MAR 2022)
     Route: 065
     Dates: start: 20190123
  13. AZITHROMYCIN [Concomitant]
     Active Substance: AZITHROMYCIN
     Dosage: 250 MG, QD
     Route: 065
     Dates: start: 20190123, end: 20210512
  14. AZITHROMYCIN [Concomitant]
     Active Substance: AZITHROMYCIN
     Dosage: 250 MG, QD
     Route: 065
     Dates: start: 20190123, end: 202107
  15. AZITHROMYCIN [Concomitant]
     Active Substance: AZITHROMYCIN
     Dosage: 250 MG, QD
     Route: 065
     Dates: start: 20190123, end: 20210909
  16. AZITHROMYCIN [Concomitant]
     Active Substance: AZITHROMYCIN
     Dosage: 250 MG, QD
     Route: 065
     Dates: start: 20190123, end: 20211106
  17. AZITHROMYCIN [Concomitant]
     Active Substance: AZITHROMYCIN
     Dosage: 250 MG, QD
     Route: 065
     Dates: start: 20190123, end: 20220310
  18. RIFAMPIN [Concomitant]
     Active Substance: RIFAMPIN
     Indication: Mycobacterium avium complex infection
     Dosage: 300 MG, QD
     Route: 065
     Dates: start: 20190123, end: 20210512
  19. RIFAMPIN [Concomitant]
     Active Substance: RIFAMPIN
     Dosage: 300 MG, QD
     Route: 065
     Dates: start: 20190123, end: 202107
  20. RIFAMPIN [Concomitant]
     Active Substance: RIFAMPIN
     Dosage: 300 MG, QD
     Route: 065
     Dates: start: 20190123, end: 20210909
  21. RIFAMPIN [Concomitant]
     Active Substance: RIFAMPIN
     Dosage: 300 MG, QD
     Route: 065
     Dates: start: 20190123, end: 20211106
  22. RIFAMPIN [Concomitant]
     Active Substance: RIFAMPIN
     Dosage: 300 MG, QD
     Route: 065
     Dates: start: 20190123, end: 20220310
  23. ETHAMBUTOL [Concomitant]
     Active Substance: ETHAMBUTOL HYDROCHLORIDE
     Indication: Mycobacterium avium complex infection
     Dosage: 400 MG, QD
     Route: 065
     Dates: start: 20190123, end: 20210512
  24. ETHAMBUTOL [Concomitant]
     Active Substance: ETHAMBUTOL HYDROCHLORIDE
     Dosage: 400 MG, QD
     Route: 065
     Dates: start: 20190123, end: 202107
  25. ETHAMBUTOL [Concomitant]
     Active Substance: ETHAMBUTOL HYDROCHLORIDE
     Dosage: 400 MG, QD
     Route: 065
     Dates: start: 20190123, end: 20210909
  26. ETHAMBUTOL [Concomitant]
     Active Substance: ETHAMBUTOL HYDROCHLORIDE
     Dosage: 400 MG, QD
     Route: 065
     Dates: start: 20190123, end: 20211106
  27. ETHAMBUTOL [Concomitant]
     Active Substance: ETHAMBUTOL HYDROCHLORIDE
     Dosage: 400 MG, QD
     Route: 065
     Dates: start: 20190123, end: 20220310
  28. ADVAIR HFA [Concomitant]
     Active Substance: FLUTICASONE PROPIONATE\SALMETEROL XINAFOATE
     Indication: Asthma
     Dosage: 1 DOSAGE FORM, BID
     Route: 065
     Dates: start: 20210512, end: 202107
  29. ADVAIR HFA [Concomitant]
     Active Substance: FLUTICASONE PROPIONATE\SALMETEROL XINAFOATE
     Dosage: 1 DOSAGE FORM, QD
     Route: 065
     Dates: start: 20210512, end: 20211106
  30. DECADRON [Concomitant]
     Active Substance: DEXAMETHASONE
     Indication: Product used for unknown indication
     Dosage: 4 MG, BID
     Route: 065
  31. DECADRON [Concomitant]
     Active Substance: DEXAMETHASONE
     Dosage: 6 MG, QD
     Route: 065
     Dates: start: 20140703
  32. ALBUTEROL [Concomitant]
     Active Substance: ALBUTEROL
     Indication: Product used for unknown indication
     Dosage: UNK
     Route: 065
  33. CLOPIDOGREL [Concomitant]
     Active Substance: CLOPIDOGREL BISULFATE
     Indication: Product used for unknown indication
     Dosage: UNK
     Route: 065
  34. CRESTOR [Concomitant]
     Active Substance: ROSUVASTATIN CALCIUM
     Indication: Product used for unknown indication
     Dosage: UNK
     Route: 065
  35. SPIRIVA [Concomitant]
     Active Substance: TIOTROPIUM BROMIDE MONOHYDRATE
     Indication: Product used for unknown indication
     Dosage: UNK
     Route: 065

REACTIONS (11)
  - Cerebrovascular accident [Recovered/Resolved]
  - Hemiparesis [Recovered/Resolved]
  - Cerebrovascular accident [Recovered/Resolved]
  - Infarction [Unknown]
  - Deafness bilateral [Recovered/Resolved]
  - Mycobacterium abscessus infection [Not Recovered/Not Resolved]
  - Pneumonia [Recovered/Resolved]
  - Ischaemia [Unknown]
  - Weight decreased [Not Recovered/Not Resolved]
  - Asthma [Recovered/Resolved with Sequelae]
  - Skin discolouration [Not Recovered/Not Resolved]

NARRATIVE: CASE EVENT DATE: 20210512
